FAERS Safety Report 21492168 (Version 4)
Quarter: 2022Q4

REPORT INFORMATION
  Report Type: Spontaneous
  Country: US (occurrence: US)
  Receive Date: 20221021
  Receipt Date: 20221219
  Transmission Date: 20230113
  Serious: No
  Sender: FDA-Public Use
  Company Number: US-Blueprint Medicines Corporation-SP-US-2022-003055

PATIENT
  Age: 67 Year
  Sex: Female

DRUGS (2)
  1. AYVAKIT [Suspect]
     Active Substance: AVAPRITINIB
     Indication: Systemic mastocytosis
     Dosage: ALONG WITH A 50 MILLIGRAMS FOR 75 MILLIGRAMS TOTAL
     Route: 048
     Dates: start: 20210714
  2. AYVAKIT [Suspect]
     Active Substance: AVAPRITINIB
     Dosage: ALONG WITH A 25 MILLIGRAMS FOR 75 MILLIGRAMS TOTAL
     Route: 048
     Dates: start: 20210714

REACTIONS (5)
  - Insomnia [Not Recovered/Not Resolved]
  - Arthritis [Recovering/Resolving]
  - Arthralgia [Not Recovered/Not Resolved]
  - Joint swelling [Not Recovered/Not Resolved]
  - Depressed mood [Not Recovered/Not Resolved]

NARRATIVE: CASE EVENT DATE: 20220214
